FAERS Safety Report 17942971 (Version 1)
Quarter: 2020Q2

REPORT INFORMATION
  Report Type: Spontaneous
  Country: US (occurrence: US)
  Receive Date: 20200625
  Receipt Date: 20200625
  Transmission Date: 20200714
  Serious: Yes (Other)
  Sender: FDA-Public Use
  Company Number: None

PATIENT
  Age: 55 Year
  Sex: Female
  Weight: 76.5 kg

DRUGS (14)
  1. PANTOPRAZOLE 40MG [Concomitant]
     Active Substance: PANTOPRAZOLE SODIUM
  2. AUSTEDO [Suspect]
     Active Substance: DEUTETRABENAZINE
     Indication: TARDIVE DYSKINESIA
     Route: 048
  3. PROMETHAZINE 50MG [Concomitant]
  4. PRISTIQ 100MG [Concomitant]
  5. SYNTHROID [Concomitant]
     Active Substance: LEVOTHYROXINE SODIUM
  6. CLONAZEPAM 0.5MG [Concomitant]
     Active Substance: CLONAZEPAM
  7. AZO CRANBERRY CAPSULE [Concomitant]
  8. TIZANIDINE 4MG [Concomitant]
     Active Substance: TIZANIDINE
  9. DICLOFENAC 75MG DR [Concomitant]
  10. LITHIUM ER 300MG [Concomitant]
  11. VENTOLIN HFA INHALER [Concomitant]
  12. PERCOCET [Concomitant]
     Active Substance: ACETAMINOPHEN\OXYCODONE HYDROCHLORIDE
  13. DEPLIN 7.5MG CAPSULE [Concomitant]
  14. LISINOPRIL 10MG [Concomitant]
     Active Substance: LISINOPRIL

REACTIONS (3)
  - Vertigo [None]
  - Tinnitus [None]
  - Dysstasia [None]

NARRATIVE: CASE EVENT DATE: 20200621
